FAERS Safety Report 6934715-8 (Version None)
Quarter: 2010Q3

REPORT INFORMATION
  Report Type: 
  Country: None (occurrence: None)
  Receive Date: 20100820
  Receipt Date: 20100818
  Transmission Date: 20110219
  Serious: Yes (Hospitalization)
  Sender: FDA-Public Use
  Company Number: FR-MERCK-1008FRA00061

PATIENT
  Age: 76 Year
  Sex: Female

DRUGS (7)
  1. ZOCOR [Suspect]
     Indication: DYSLIPIDAEMIA
     Route: 048
     Dates: start: 20100513, end: 20100608
  2. AVOCADO-SOYBEAN UNSAPONIFIABLE LIPIDS [Suspect]
     Route: 048
     Dates: start: 20100511, end: 20100608
  3. PROPAFENONE HYDROCHLORIDE [Suspect]
     Route: 048
     Dates: end: 20100613
  4. CLONAZEPAM [Concomitant]
     Route: 048
     Dates: end: 20100613
  5. LEVOTHYROXINE SODIUM [Concomitant]
     Indication: HYPOTHYROIDISM
     Route: 048
  6. FLUOXETINE HYDROCHLORIDE [Concomitant]
     Route: 048
     Dates: end: 20100614
  7. LANSOPRAZOLE [Concomitant]
     Route: 048

REACTIONS (3)
  - CHOLESTASIS [None]
  - CYTOLYTIC HEPATITIS [None]
  - JAUNDICE [None]
